FAERS Safety Report 8324981-9 (Version None)
Quarter: 2012Q2

REPORT INFORMATION
  Report Type: 
  Country: None (occurrence: None)
  Receive Date: 20120501
  Receipt Date: 20100305
  Transmission Date: 20120825
  Serious: No
  Sender: FDA-Public Use
  Company Number: US-TEVA-2010001372

PATIENT
  Sex: Female
  Weight: 79.45 kg

DRUGS (4)
  1. ALLEGRA [Concomitant]
     Dates: start: 19950101
  2. NUVIGIL [Suspect]
     Indication: SLEEP APNOEA SYNDROME
     Dosage: 150 MILLIGRAM;
     Route: 048
     Dates: start: 20100304, end: 20100305
  3. NEXIUM [Concomitant]
     Dates: start: 20040101
  4. PREMARIN [Concomitant]
     Dates: start: 20050101

REACTIONS (3)
  - PRURITUS [None]
  - RASH [None]
  - URTICARIA [None]
